FAERS Safety Report 4517302-0 (Version None)
Quarter: 2004Q4

REPORT INFORMATION
  Report Type: 
  Country: None (occurrence: None)
  Receive Date: 20041005
  Receipt Date: 20040629
  Transmission Date: 20050328
  Serious: No
  Sender: FDA-Public Use
  Company Number: SU-2004-002487

PATIENT
  Age: 56 Year
  Sex: Female

DRUGS (4)
  1. BENICAR HCT [Suspect]
     Indication: HYPERTENSION
     Dosage: 20.125 MG QOD PO
     Route: 048
     Dates: start: 20040601
  2. BENICAR [Suspect]
     Indication: HYPERTENSION
     Dosage: MG QOD PO
     Route: 048
     Dates: start: 20040601
  3. PLENDIL [Concomitant]
  4. POTASSIUM [Concomitant]

REACTIONS (1)
  - RASH MACULO-PAPULAR [None]
